FAERS Safety Report 13376792 (Version 1)
Quarter: 2017Q1

REPORT INFORMATION
  Report Type: Spontaneous
  Country: CN (occurrence: CN)
  Receive Date: 20170328
  Receipt Date: 20170328
  Transmission Date: 20170429
  Serious: Yes (Other)
  Sender: FDA-Public Use
  Company Number: CN-ABBVIE-17P-035-1923122-00

PATIENT
  Age: 62 Year
  Sex: Male

DRUGS (2)
  1. DEPAKINE [Suspect]
     Active Substance: VALPROATE SODIUM
     Indication: DEPRESSION
     Dosage: TABLET, EXTENDED RELEASE
     Route: 048
     Dates: start: 20161031, end: 20170110
  2. OU LAN NING [Suspect]
     Active Substance: OLANZAPINE
     Indication: DEPRESSION
     Route: 048
     Dates: start: 20161017, end: 20170113

REACTIONS (3)
  - Aspartate aminotransferase increased [None]
  - Hepatic function abnormal [Unknown]
  - Alanine aminotransferase increased [None]

NARRATIVE: CASE EVENT DATE: 20170110
